FAERS Safety Report 9004778 (Version 2)
Quarter: 2013Q1

REPORT INFORMATION
  Report Type: Spontaneous
  Country: US (occurrence: None)
  Receive Date: 20121227
  Receipt Date: 20130214
  Transmission Date: 20140127
  Serious: Yes (Hospitalization, Other)
  Sender: FDA-Public Use
  Company Number: AUR-APL-2012-05474

PATIENT
  Age: 61 Year
  Sex: Male

DRUGS (1)
  1. AMOXICILLIN (AMOXICILLIN) [Suspect]
     Indication: PROPHYLAXIS
     Dosage: (375 MG, 2 IN 1 D)
     Route: 048

REACTIONS (9)
  - Back pain [None]
  - Fatigue [None]
  - Decreased appetite [None]
  - Jaundice [None]
  - Hiccups [None]
  - Hepatitis [None]
  - Hepatitis A antibody positive [None]
  - Hepatitis B antibody positive [None]
  - Drug-induced liver injury [None]
